FAERS Safety Report 5083864-0 (Version None)
Quarter: 2006Q3

REPORT INFORMATION
  Report Type: 
  Country: None (occurrence: None)
  Receive Date: 20060727
  Receipt Date: 20060414
  Transmission Date: 20061208
  Serious: Yes (Other)
  Sender: FDA-Public Use
  Company Number: 2006052470

PATIENT
  Age: 64 Year
  Sex: Female

DRUGS (9)
  1. LYRICA [Suspect]
     Indication: DIABETIC NEUROPATHY
     Dosage: 150 MH (75 MG, BID)
     Dates: start: 20060306
  2. LYRICA [Suspect]
     Indication: VERTIGO
     Dosage: 150 MH (75 MG, BID)
     Dates: start: 20060306
  3. MOBIC [Concomitant]
  4. METFORMIN HCL [Concomitant]
  5. LIPITOR [Concomitant]
  6. ZYRTEC [Concomitant]
  7. PREVACID [Concomitant]
  8. MICARDIS [Concomitant]
  9. DYNACIRC [Concomitant]

REACTIONS (6)
  - DISTURBANCE IN ATTENTION [None]
  - EYE DISORDER [None]
  - EYE PAIN [None]
  - FLUID RETENTION [None]
  - VISION BLURRED [None]
  - WEIGHT INCREASED [None]
